FAERS Safety Report 24436118 (Version 1)
Quarter: 2024Q4

REPORT INFORMATION
  Report Type: Spontaneous
  Country: US (occurrence: US)
  Receive Date: 20241015
  Receipt Date: 20241015
  Transmission Date: 20250114
  Serious: No
  Sender: BRISTOL-MYERS SQUIBB COMPANY
  Company Number: US-BRISTOL-MYERS SQUIBB COMPANY-2024-161830

PATIENT
  Age: 64 Year
  Sex: Female

DRUGS (4)
  1. ORENCIA [Suspect]
     Active Substance: ABATACEPT
     Indication: Product used for unknown indication
  2. PROGESTERONE [Concomitant]
     Active Substance: PROGESTERONE
     Indication: Product used for unknown indication
  3. COLCHICINE [Concomitant]
     Active Substance: COLCHICINE
     Indication: Product used for unknown indication
  4. TRAMADOL [Concomitant]
     Active Substance: TRAMADOL
     Indication: Product used for unknown indication

REACTIONS (1)
  - Drug ineffective [Unknown]
